FAERS Safety Report 8488705-7 (Version None)
Quarter: 2012Q2

REPORT INFORMATION
  Report Type: 
  Country: None (occurrence: None)
  Receive Date: 20120626
  Receipt Date: 20120611
  Transmission Date: 20120825
  Serious: Yes (Hospitalization, Other)
  Sender: FDA-Public Use
  Company Number: NSR_00576_2012

PATIENT
  Age: 36 Year
  Sex: Female

DRUGS (4)
  1. PERINDOPRIL ERBUMINE [Concomitant]
  2. ROSUVASTATIN [Concomitant]
  3. SYNTHETIC ESTROGENS, PLAIN [Concomitant]
  4. ALLOPURINOL [Suspect]
     Indication: PRODUCT USED FOR UNKNOWN INDICATION
     Dosage: (10 G 1X, NOT THE PRESCRIBED AMOUNT), (100 MG QD)

REACTIONS (1)
  - OVERDOSE [None]
